FAERS Safety Report 5893881-6 (Version None)
Quarter: 2008Q3

REPORT INFORMATION
  Report Type: 
  Country: None (occurrence: None)
  Receive Date: 20080923
  Receipt Date: 20071127
  Transmission Date: 20090109
  Serious: No
  Sender: FDA-Public Use
  Company Number: US-ASTRAZENECA-2007UW27179

PATIENT
  Age: 24 Year
  Sex: Male
  Weight: 86.2 kg

DRUGS (4)
  1. SEROQUEL [Suspect]
     Indication: SCHIZOPHRENIA, PARANOID TYPE
     Route: 048
  2. RISPERDAL [Concomitant]
  3. CONSTA [Concomitant]
  4. STRATTERA [Concomitant]

REACTIONS (10)
  - ASTHENIA [None]
  - DIZZINESS [None]
  - DRY MOUTH [None]
  - DYSARTHRIA [None]
  - FOOD CRAVING [None]
  - OROPHARYNGEAL PAIN [None]
  - SOMNOLENCE [None]
  - STOMACH DISCOMFORT [None]
  - VISION BLURRED [None]
  - WEIGHT INCREASED [None]
